FAERS Safety Report 23989236 (Version 2)
Quarter: 2024Q3

REPORT INFORMATION
  Report Type: Spontaneous
  Country: DE (occurrence: DE)
  Receive Date: 20240619
  Receipt Date: 20240705
  Transmission Date: 20241016
  Serious: Yes (Death, Hospitalization)
  Sender: TEVA
  Company Number: DE-TEVA-VS-3209268

PATIENT
  Age: 78 Year
  Sex: Female

DRUGS (4)
  1. VORICONAZOLE [Suspect]
     Active Substance: VORICONAZOLE
     Indication: Nocardiosis
     Route: 065
  2. SULFAMETHOXAZOLE\TRIMETHOPRIM [Suspect]
     Active Substance: SULFAMETHOXAZOLE\TRIMETHOPRIM
     Indication: Nocardiosis
     Dosage: 2 ? 960MG
     Route: 042
  3. INTERFERON GAMMA [Suspect]
     Active Substance: INTERFERON GAMMA
     Indication: Nocardiosis
     Dosage: TIME INTERVAL: 0.33333333 WEEKS
     Route: 058
  4. MEROPENEM [Suspect]
     Active Substance: MEROPENEM
     Indication: Nocardiosis
     Dosage: TIME INTERVAL: 0.33333333 DAYS
     Route: 042

REACTIONS (2)
  - Drug ineffective [Fatal]
  - Pancytopenia [Recovered/Resolved]
